FAERS Safety Report 5043836-9 (Version None)
Quarter: 2006Q2

REPORT INFORMATION
  Report Type: 
  Country: None (occurrence: None)
  Receive Date: 20060601
  Receipt Date: 20060216
  Transmission Date: 20061013
  Serious: No
  Sender: FDA-Public Use
  Company Number: US200602003825

PATIENT
  Age: 49 Year
  Sex: Female

DRUGS (2)
  1. CYMBALTA [Suspect]
     Indication: PANIC ATTACK
     Dosage: 60 MG, 2/D
     Dates: start: 20050921
  2. WELLBUTRIN [Concomitant]

REACTIONS (5)
  - CONFUSIONAL STATE [None]
  - HANGOVER [None]
  - MUSCLE TIGHTNESS [None]
  - PANIC REACTION [None]
  - SUICIDAL IDEATION [None]
